FAERS Safety Report 19961218 (Version 1)
Quarter: 2021Q4

REPORT INFORMATION
  Report Type: Spontaneous
  Country: CH (occurrence: CH)
  Receive Date: 20211016
  Receipt Date: 20211016
  Transmission Date: 20220304
  Serious: Yes (Death, Other)
  Sender: FDA-Public Use
  Company Number: CH-SM-2019-19065

PATIENT
  Age: 87 Year
  Sex: Female

DRUGS (22)
  1. AMLODIPINE [Suspect]
     Active Substance: AMLODIPINE BESYLATE
     Dosage: 5 MG
     Dates: start: 20171010, end: 20191220
  2. IBUPROFEN [Suspect]
     Active Substance: IBUPROFEN
     Dosage: AS NECESSARY
     Dates: start: 20171003, end: 20191220
  3. ESOMEPRAZOLE MAGNESIUM [Suspect]
     Active Substance: ESOMEPRAZOLE MAGNESIUM
     Dosage: 20 MG
     Route: 048
     Dates: start: 20190206, end: 20191219
  4. MEBEVERINE [Suspect]
     Active Substance: MEBEVERINE
     Dosage: 200 MG
     Dates: start: 20190212
  5. METOPROLOL [Suspect]
     Active Substance: METOPROLOL
     Dosage: 50 MG
     Dates: start: 20180321
  6. LORAZEPAM [Suspect]
     Active Substance: LORAZEPAM
     Dosage: 1 MG
     Dates: start: 20190702, end: 20191220
  7. TORSEMIDE [Suspect]
     Active Substance: TORSEMIDE
     Dosage: 5 MG
     Dates: start: 20190618, end: 20191219
  8. XARELTO [Suspect]
     Active Substance: RIVAROXABAN
     Dosage: 10 MG
     Dates: start: 20180417
  9. ALBUTEROL SULFATE\IPRATROPIUM BROMIDE [Suspect]
     Active Substance: ALBUTEROL SULFATE\IPRATROPIUM BROMIDE
     Dates: start: 20190723, end: 20191220
  10. BEXIN [Suspect]
     Active Substance: DEXTROMETHORPHAN HYDROBROMIDE
     Dosage: AS NECESSARY
     Dates: start: 20190723, end: 20191220
  11. DAFALGAN [Suspect]
     Active Substance: ACETAMINOPHEN
     Dosage: AS NECESSARY
     Dates: start: 20190627
  12. CLOMETHIAZOLE [Suspect]
     Active Substance: CLOMETHIAZOLE
     Dosage: AS NECESSARY
     Dates: start: 20181218, end: 20191220
  13. LORAZEPAM [Suspect]
     Active Substance: LORAZEPAM
     Dosage: EXPIDET , AS NECESSARY
     Dates: start: 20190326
  14. ACTIVATED CHARCOAL\DIMETHICONE [Concomitant]
     Active Substance: ACTIVATED CHARCOAL\DIMETHICONE
     Dates: start: 201909, end: 201910
  15. ADALAT [Concomitant]
     Active Substance: NIFEDIPINE
     Indication: Hypertensive crisis
     Dates: start: 2019, end: 2019
  16. GAVISCON [Concomitant]
     Active Substance: ALUMINUM HYDROXIDE\MAGNESIUM CARBONATE
     Dates: start: 20190322
  17. CHOLECALCIFEROL [Concomitant]
     Active Substance: CHOLECALCIFEROL
     Dates: start: 20180321
  18. SODIUM CHLORIDE [Concomitant]
     Active Substance: SODIUM CHLORIDE
     Dates: start: 201804
  19. Antidry [Concomitant]
     Dosage: LOTION
     Dates: start: 20170117
  20. CLOBEX [Concomitant]
     Active Substance: CLOBETASOL PROPIONATE
  21. Der-med [Concomitant]
     Dates: start: 20161210
  22. Transipeg [Concomitant]
     Dosage: AS NECESSARY
     Dates: start: 20190326

REACTIONS (1)
  - Dermatitis bullous [Recovered/Resolved]

NARRATIVE: CASE EVENT DATE: 20190901
